FAERS Safety Report 25348441 (Version 1)
Quarter: 2025Q2

REPORT INFORMATION
  Report Type: Spontaneous
  Country: US (occurrence: US)
  Receive Date: 20250522
  Receipt Date: 20250522
  Transmission Date: 20250717
  Serious: No
  Sender: APELLIS PHARMACEUTICALS
  Company Number: US-APELLIS-2025-APL-0001120

PATIENT

DRUGS (13)
  1. SYFOVRE [Suspect]
     Active Substance: PEGCETACOPLAN
     Indication: Dry age-related macular degeneration
     Route: 031
     Dates: start: 20250221
  2. Focus select macular health zinc free [Concomitant]
     Indication: Product used for unknown indication
     Dosage: 1 BID BY MOUTH
     Route: 048
  3. Artificial tears [Concomitant]
     Indication: Product used for unknown indication
     Route: 050
  4. FAMOTIDINE [Concomitant]
     Active Substance: FAMOTIDINE
     Indication: Product used for unknown indication
     Dosage: 40 MG ORAL TABLET 1 TABLET QDAY BY MOUTH
     Route: 048
  5. BENICAR [Concomitant]
     Active Substance: OLMESARTAN MEDOXOMIL
     Indication: Product used for unknown indication
     Dosage: 20 MG ORAL TABLET 1 TABLET?QDAY BY MOUTH
     Route: 048
  6. ELIQUIS [Concomitant]
     Active Substance: APIXABAN
     Indication: Product used for unknown indication
     Dosage: 5 MG QDAY
     Route: 065
  7. PANTOPRAZOLE [Concomitant]
     Active Substance: PANTOPRAZOLE
     Indication: Product used for unknown indication
  8. TAMSULOSIN [Concomitant]
     Active Substance: TAMSULOSIN
     Indication: Product used for unknown indication
  9. ROSUVASTATIN CALCIUM [Concomitant]
     Active Substance: ROSUVASTATIN CALCIUM
     Indication: Product used for unknown indication
  10. VITAMINS [Concomitant]
     Active Substance: VITAMINS
     Indication: Product used for unknown indication
     Dosage: 1 QDAY
  11. COENZYME Q10 [Concomitant]
     Active Substance: DIETARY SUPPLEMENT\UBIDECARENONE
     Indication: Product used for unknown indication
     Dosage: 100 MG 1 QDAY BY MOUTH
     Route: 048
  12. ROPINIROLE [Concomitant]
     Active Substance: ROPINIROLE
     Indication: Product used for unknown indication
     Dosage: 0.24 1 TABLET QDAY
  13. CHONDROITIN SULFATE (BOVINE)\GLUCOSAMINE HYDROCHLORIDE [Concomitant]
     Active Substance: CHONDROITIN SULFATE (BOVINE)\GLUCOSAMINE HYDROCHLORIDE
     Indication: Product used for unknown indication
     Dosage: QDAY
     Route: 065

REACTIONS (9)
  - Hyalosis asteroid [Unknown]
  - Disease progression [Unknown]
  - Vitreous detachment [Unknown]
  - Vitreous detachment [Unknown]
  - Ocular hypertension [Recovered/Resolved]
  - Pseudophakia [Unknown]
  - Pseudophakia [Unknown]
  - Choroidal neovascularisation [Recovered/Resolved]
  - Dry age-related macular degeneration [Unknown]
